FAERS Safety Report 4277354-2 (Version None)
Quarter: 2004Q1

REPORT INFORMATION
  Report Type: 
  Country: None (occurrence: None)
  Receive Date: 20040122
  Receipt Date: 20040113
  Transmission Date: 20041129
  Serious: Yes (Other)
  Sender: FDA-Public Use
  Company Number: PHEH2004US00778

PATIENT
  Age: 85 Year
  Sex: Female

DRUGS (8)
  1. VOLTAREN OPHTHALMIC (NVO) [Suspect]
     Indication: CATARACT OPERATION
     Dosage: 1 GTT, QD OR BID
     Dates: start: 20030825, end: 20031001
  2. VOLTAREN OPHTHALMIC (NVO) [Suspect]
     Dosage: 1 GTT, QD OR BID
     Dates: start: 20030927, end: 20031001
  3. ASPIRIN [Concomitant]
  4. VITAMINS NOS [Concomitant]
  5. ALPRAZOLAM [Concomitant]
  6. BUTISOL [Concomitant]
  7. CARBIDOPA W/LEVODOPA [Concomitant]
  8. LOPRESSOR [Concomitant]

REACTIONS (14)
  - ABDOMINAL PAIN UPPER [None]
  - BLOOD PRESSURE FLUCTUATION [None]
  - DIARRHOEA [None]
  - DIZZINESS [None]
  - DYSURIA [None]
  - EYE SWELLING [None]
  - HEADACHE [None]
  - NAUSEA [None]
  - OEDEMA PERIPHERAL [None]
  - PYREXIA [None]
  - SKIN TURGOR DECREASED [None]
  - VARICOSE VEIN [None]
  - VENOUS THROMBOSIS LIMB [None]
  - VISUAL ACUITY REDUCED [None]
